FAERS Safety Report 13588856 (Version 2)
Quarter: 2017Q2

REPORT INFORMATION
  Report Type: Spontaneous
  Country: IN (occurrence: IN)
  Receive Date: 20170529
  Receipt Date: 20170605
  Transmission Date: 20170830
  Serious: Yes (Death)
  Sender: FDA-Public Use
  Company Number: IN-ROCHE-1941208

PATIENT
  Age: 3 Day

DRUGS (1)
  1. ACTILYSE [Suspect]
     Active Substance: ALTEPLASE
     Indication: PERIPHERAL ISCHAEMIA
     Dosage: 0.2 MG (50 MG)
     Route: 042
     Dates: start: 20170510, end: 20170513

REACTIONS (2)
  - Sepsis [Fatal]
  - Necrotising colitis [Fatal]
